FAERS Safety Report 17873686 (Version 1)
Quarter: 2020Q2

REPORT INFORMATION
  Report Type: Spontaneous
  Country: US (occurrence: US)
  Receive Date: 20200609
  Receipt Date: 20200609
  Transmission Date: 20200714
  Serious: Yes (Other)
  Sender: FDA-Public Use
  Company Number: US-SUN PHARMACEUTICAL INDUSTRIES LTD-2020R1-249279

PATIENT
  Age: 4 Year
  Sex: Male

DRUGS (3)
  1. PRAZIQUANTEL. [Suspect]
     Active Substance: PRAZIQUANTEL
     Indication: TAENIASIS
     Dosage: UNK
     Route: 065
  2. PREDNISONE. [Suspect]
     Active Substance: PREDNISONE
     Indication: CHEMOTHERAPY
     Route: 065
  3. ALBENDAZOLE. [Suspect]
     Active Substance: ALBENDAZOLE
     Indication: TAENIASIS
     Route: 065

REACTIONS (3)
  - Anaemia [Unknown]
  - Therapy partial responder [Unknown]
  - Drug ineffective [Unknown]
